FAERS Safety Report 15473226 (Version 1)
Quarter: 2018Q4

REPORT INFORMATION
  Report Type: Report from Study
  Country: BE (occurrence: BE)
  Receive Date: 20181008
  Receipt Date: 20181008
  Transmission Date: 20190205
  Serious: Yes (Death)
  Sender: FDA-Public Use
  Company Number: BE-IPSEN BIOPHARMACEUTICALS, INC.-2018-13966

PATIENT

DRUGS (2)
  1. SOMATULINE AUTOGEL INJECTABLE 120MG [Suspect]
     Active Substance: LANREOTIDE ACETATE
     Indication: OFF LABEL USE
  2. SOMATULINE AUTOGEL INJECTABLE 120MG [Suspect]
     Active Substance: LANREOTIDE ACETATE
     Indication: DIARRHOEA
     Dosage: 120 MG
     Route: 058
     Dates: start: 20170410

REACTIONS (2)
  - Off label use [Unknown]
  - Neoplasm malignant [Fatal]
